FAERS Safety Report 6474353-7 (Version None)
Quarter: 2009Q4

REPORT INFORMATION
  Report Type: 
  Country: None (occurrence: None)
  Receive Date: 20091123
  Receipt Date: 20090804
  Transmission Date: 20100525
  Serious: No
  Sender: FDA-Public Use
  Company Number: 8049868

PATIENT
  Age: 45 Year
  Sex: Female

DRUGS (13)
  1. CIMZIA [Suspect]
     Indication: RHEUMATOID ARTHRITIS
     Dosage: 400 MG SC
     Route: 058
     Dates: start: 20090728
  2. ZYRTEC [Concomitant]
  3. NEXIUM [Concomitant]
  4. CLARITIN [Concomitant]
  5. METHOTREXATE [Concomitant]
  6. VITAMIN D [Concomitant]
  7. BACLOFEN [Concomitant]
  8. HYDROCODONE [Concomitant]
  9. GLUCOSAMINE [Concomitant]
  10. SYNTHROID [Concomitant]
  11. CYMBALTA [Concomitant]
  12. ALPRAZOLAM [Concomitant]
  13. TRIAMTERENE [Concomitant]

REACTIONS (2)
  - ARTHRALGIA [None]
  - INFLUENZA LIKE ILLNESS [None]
